FAERS Safety Report 6252872-6 (Version None)
Quarter: 2009Q3

REPORT INFORMATION
  Report Type: 
  Country: None (occurrence: None)
  Receive Date: 20090701
  Receipt Date: 20090624
  Transmission Date: 20100115
  Serious: Yes (Other)
  Sender: FDA-Public Use
  Company Number: B0578744A

PATIENT
  Age: 42 Year
  Sex: Female

DRUGS (1)
  1. ALLI [Suspect]
     Indication: OBESITY
     Dosage: 60MG THREE TIMES PER DAY

REACTIONS (1)
  - DIARRHOEA [None]
